FAERS Safety Report 5434292-7 (Version None)
Quarter: 2007Q3

REPORT INFORMATION
  Report Type: 
  Country: None (occurrence: None)
  Receive Date: 20070829
  Receipt Date: 20070816
  Transmission Date: 20080115
  Serious: Yes (Death, Other)
  Sender: FDA-Public Use
  Company Number: L07-FRA-03270-01

PATIENT
  Age: 58 Year
  Sex: Male

DRUGS (6)
  1. CARBAMAZEPINE [Suspect]
     Indication: CONVULSION
     Dosage: 900 MG QD
  2. ITRACONAZOLE [Suspect]
     Indication: FUNGAL INFECTION
     Dosage: 400 MG QD PO
     Route: 048
  3. ITRACONAZOLE [Suspect]
     Indication: FUNGAL INFECTION
     Dosage: 600 MG QD PO
     Route: 048
  4. AMPHOTERICIN B LIPID COMPLEX (AMPHOTERICIN B, LIPOSOME) [Concomitant]
  5. METHYLPREDNISOLONE 16MG TAB [Concomitant]
  6. VALPROATE SODIUM [Concomitant]

REACTIONS (8)
  - CONFUSIONAL STATE [None]
  - CONVULSION [None]
  - DRUG INTERACTION [None]
  - DRUG LEVEL DECREASED [None]
  - GENERAL PHYSICAL HEALTH DETERIORATION [None]
  - HALLUCINATION [None]
  - MULTI-ORGAN FAILURE [None]
  - NEUROLOGICAL SYMPTOM [None]
